FAERS Safety Report 18311783 (Version 1)
Quarter: 2020Q3

REPORT INFORMATION
  Report Type: Spontaneous
  Country: HU (occurrence: HU)
  Receive Date: 20200925
  Receipt Date: 20200925
  Transmission Date: 20201104
  Serious: Yes (Other)
  Sender: FDA-Public Use
  Company Number: HU-ORION CORPORATION ORION PHARMA-20_00010920

PATIENT
  Age: 30 Year
  Sex: Male
  Weight: 93 kg

DRUGS (11)
  1. DICLOFENAC?ORPHENADRINE [Concomitant]
     Indication: ANALGESIC THERAPY
     Dosage: 5 TIMES
     Route: 065
  2. TRAMADOL. [Suspect]
     Active Substance: TRAMADOL
     Indication: PRODUCT USED FOR UNKNOWN INDICATION
     Route: 065
  3. SECUKINUMAB. [Suspect]
     Active Substance: SECUKINUMAB
     Route: 058
     Dates: start: 201911, end: 201912
  4. METHOTREXATE (TRADE NAME UNKNOWN) [Suspect]
     Active Substance: METHOTREXATE
     Route: 065
     Dates: end: 2020
  5. SECUKINUMAB. [Suspect]
     Active Substance: SECUKINUMAB
     Indication: PSORIATIC ARTHROPATHY
     Route: 058
     Dates: end: 2020
  6. ETORICOXIB. [Suspect]
     Active Substance: ETORICOXIB
     Indication: PRODUCT USED FOR UNKNOWN INDICATION
     Route: 065
  7. DICLOFENAC [Suspect]
     Active Substance: DICLOFENAC
     Indication: PRODUCT USED FOR UNKNOWN INDICATION
     Route: 065
  8. METHOTREXATE (TRADE NAME UNKNOWN) [Suspect]
     Active Substance: METHOTREXATE
     Indication: PRODUCT USED FOR UNKNOWN INDICATION
     Route: 065
     Dates: start: 2020
  9. SECUKINUMAB. [Suspect]
     Active Substance: SECUKINUMAB
     Route: 065
     Dates: start: 2020
  10. CERTOLIZUMAB PEGOL [Concomitant]
     Active Substance: CERTOLIZUMAB PEGOL
     Route: 065
     Dates: start: 20190226
  11. NIMESULIDE [Concomitant]
     Active Substance: NIMESULIDE
     Route: 065

REACTIONS (14)
  - Ankylosing spondylitis [Unknown]
  - Back pain [Recovering/Resolving]
  - Arthralgia [Unknown]
  - Skin exfoliation [Recovering/Resolving]
  - Facial paralysis [Unknown]
  - Body mass index abnormal [Unknown]
  - Skin lesion [Unknown]
  - Hypercholesterolaemia [Unknown]
  - Neck pain [Unknown]
  - Psoriatic arthropathy [Unknown]
  - Ligament calcification [Unknown]
  - Spinal pain [Recovered/Resolved]
  - Pustular psoriasis [Unknown]
  - Sacroiliitis [Unknown]

NARRATIVE: CASE EVENT DATE: 2008
